FAERS Safety Report 14269158 (Version 1)
Quarter: 2017Q4

REPORT INFORMATION
  Report Type: Spontaneous
  Country: US (occurrence: US)
  Receive Date: 20171211
  Receipt Date: 20171211
  Transmission Date: 20180321
  Serious: Yes (Death)
  Sender: FDA-Public Use
  Company Number: US-PERRIGO-17US030758

PATIENT
  Age: 47 Year
  Sex: Male

DRUGS (3)
  1. NAPROXEN. [Suspect]
     Active Substance: NAPROXEN
     Indication: COMPLETED SUICIDE
     Dosage: UNKNOWN
     Route: 048
  2. MULTIVITAMINS PLUS IRON [Suspect]
     Active Substance: IRON\VITAMINS
     Indication: COMPLETED SUICIDE
     Dosage: UNKNOWN
     Route: 048
  3. ETHYLENE GLYCOL [Suspect]
     Active Substance: ETHYLENE GLYCOL
     Indication: COMPLETED SUICIDE
     Dosage: UNKNOWN
     Route: 048

REACTIONS (2)
  - Completed suicide [None]
  - Death [Fatal]
